FAERS Safety Report 12317746 (Version 1)
Quarter: 2016Q2

REPORT INFORMATION
  Report Type: Spontaneous
  Country: US (occurrence: US)
  Receive Date: 20160429
  Receipt Date: 20160429
  Transmission Date: 20160815
  Serious: No
  Sender: FDA-Public Use
  Company Number: US-LNK INTERNATIONAL, INC.-1051190

PATIENT
  Age: 3 Year
  Sex: Female

DRUGS (1)
  1. RAPID MELTS CHILDRENS [Suspect]
     Active Substance: ACETAMINOPHEN

REACTIONS (2)
  - Accidental exposure to product by child [None]
  - Failure of child resistant mechanism for pharmaceutical product [None]
